FAERS Safety Report 12633469 (Version 2)
Quarter: 2016Q3

REPORT INFORMATION
  Report Type: Spontaneous
  Country: CN (occurrence: CN)
  Receive Date: 20160809
  Receipt Date: 20160819
  Transmission Date: 20161109
  Serious: Yes (Death)
  Sender: FDA-Public Use
  Company Number: CN-BAYER-2016-153321

PATIENT
  Age: 85 Year
  Sex: Female

DRUGS (1)
  1. BAYASPIRIN [Suspect]
     Active Substance: ASPIRIN
     Dosage: 6 DF, UNK
     Route: 045
     Dates: start: 2014, end: 2014

REACTIONS (4)
  - Product use issue [None]
  - Gastric ulcer [Fatal]
  - Gastric haemorrhage [Fatal]
  - Intestinal ulcer [Fatal]

NARRATIVE: CASE EVENT DATE: 2014
